FAERS Safety Report 20872780 (Version 1)
Quarter: 2022Q2

REPORT INFORMATION
  Report Type: Spontaneous
  Country: US (occurrence: None)
  Receive Date: 20220524
  Receipt Date: 20220524
  Transmission Date: 20220720
  Serious: Yes (Other)
  Sender: FDA-Public Use
  Company Number: None

PATIENT
  Age: 71 Year
  Sex: Male
  Weight: 83.1 kg

DRUGS (1)
  1. ZOLEDRONIC ACID [Suspect]
     Active Substance: ZOLEDRONIC ACID
     Indication: Osteoporosis
     Dosage: FREQUENCY : ONCE;?
     Route: 041
     Dates: start: 20220513, end: 20220513

REACTIONS (5)
  - Headache [None]
  - Eye pain [None]
  - Ocular hyperaemia [None]
  - Eye swelling [None]
  - Eye inflammation [None]

NARRATIVE: CASE EVENT DATE: 20220515
